FAERS Safety Report 5963399-0 (Version None)
Quarter: 2008Q4

REPORT INFORMATION
  Report Type: 
  Country: None (occurrence: None)
  Receive Date: 20081124
  Receipt Date: 20081113
  Transmission Date: 20090506
  Serious: Yes (Other)
  Sender: FDA-Public Use
  Company Number: D0059026A

PATIENT
  Age: 48 Year
  Sex: Female
  Weight: 60 kg

DRUGS (9)
  1. ELMENDOS [Suspect]
     Indication: BIPOLAR DISORDER
     Dosage: 12.5MG PER DAY
     Route: 048
     Dates: start: 20081006
  2. SEROQUEL [Concomitant]
     Dosage: 100MG PER DAY
     Route: 048
  3. EUTHYROX [Concomitant]
     Dosage: 12.5UG PER DAY
     Route: 048
  4. BISOPROLOL FUMARATE [Concomitant]
     Dosage: 5MG PER DAY
     Route: 048
  5. PANTOZOL [Concomitant]
     Dosage: 20MG PER DAY
     Route: 048
  6. LORAZEPAM [Concomitant]
     Dosage: .5MG TWICE PER DAY
     Route: 048
  7. AKINETON [Concomitant]
     Dosage: 2MG PER DAY
     Route: 048
  8. ASPIRIN [Concomitant]
     Dosage: 100MG PER DAY
     Route: 048
  9. NEPHROTRANS [Concomitant]
     Route: 048

REACTIONS (6)
  - BRADYCARDIA [None]
  - CONVULSION [None]
  - HYPONATRAEMIA [None]
  - LOSS OF CONSCIOUSNESS [None]
  - MUSCLE TWITCHING [None]
  - SYNCOPE [None]
